FAERS Safety Report 8450087-4 (Version None)
Quarter: 2012Q2

REPORT INFORMATION
  Report Type: 
  Country: None (occurrence: None)
  Receive Date: 20120620
  Receipt Date: 20120614
  Transmission Date: 20120825
  Serious: Yes (Hospitalization, Other)
  Sender: FDA-Public Use
  Company Number: US-ABBOTT-12P-163-0935846-00

PATIENT
  Age: 53 Year
  Sex: Male

DRUGS (8)
  1. HUMIRA [Suspect]
     Indication: PYODERMA GANGRENOSUM
     Dates: start: 20110712, end: 20111004
  2. HUMIRA [Suspect]
     Dates: start: 20120523
  3. PREDNISONE [Concomitant]
     Indication: PYODERMA GANGRENOSUM
     Dosage: 20 MG DAILY
  4. WARFARIN SODIUM [Concomitant]
     Indication: THROMBOSIS PROPHYLAXIS
     Dosage: DAILY FOR THREE MONTHS
  5. IRON [Concomitant]
     Indication: PRODUCT USED FOR UNKNOWN INDICATION
     Dosage: 325 MG DAILY
  6. ASPIRIN [Concomitant]
     Indication: THROMBOSIS PROPHYLAXIS
     Dosage: 81 MG DAILY
  7. HYDROCHLOROTHIAZIDE [Concomitant]
     Indication: SWELLING
     Dosage: (12.5 MG = 1 TAB) DAILY
  8. ACETAMINOPHEN [Concomitant]
     Indication: PAIN

REACTIONS (14)
  - ILEOSTOMY [None]
  - CHILLS [None]
  - SMALL INTESTINAL OBSTRUCTION [None]
  - GAIT DISTURBANCE [None]
  - JOINT SWELLING [None]
  - ARTHRALGIA [None]
  - RASH [None]
  - PYREXIA [None]
  - HERNIA [None]
  - CELLULITIS [None]
  - ERYTHEMA [None]
  - OEDEMA PERIPHERAL [None]
  - ABDOMINAL ADHESIONS [None]
  - KNEE ARTHROPLASTY [None]
